FAERS Safety Report 9688839 (Version 1)
Quarter: 2013Q4

REPORT INFORMATION
  Report Type: Spontaneous
  Country: US (occurrence: US)
  Receive Date: 20131114
  Receipt Date: 20131114
  Transmission Date: 20140711
  Serious: Yes (Other)
  Sender: FDA-Public Use
  Company Number: US-PFIZER INC-2013320647

PATIENT
  Sex: Female

DRUGS (2)
  1. BOSULIF [Suspect]
     Indication: CHRONIC MYELOID LEUKAEMIA
     Dosage: 300 MG, 1X/DAY
  2. BOSULIF [Suspect]
     Dosage: 200 MG, 1X/DAY

REACTIONS (9)
  - Capillary leak syndrome [Recovered/Resolved]
  - Cytokine storm [Recovered/Resolved]
  - Bone marrow disorder [Unknown]
  - Fluid retention [Recovered/Resolved]
  - Neutrophil count increased [Recovered/Resolved]
  - Pyrexia [Recovered/Resolved]
  - Rash [Recovered/Resolved]
  - Diarrhoea [Recovered/Resolved]
  - Drug intolerance [Unknown]
